FAERS Safety Report 6693829-0 (Version None)
Quarter: 2010Q2

REPORT INFORMATION
  Report Type: 
  Country: None (occurrence: None)
  Receive Date: 20100423
  Receipt Date: 20100413
  Transmission Date: 20101027
  Serious: Yes (Hospitalization)
  Sender: FDA-Public Use
  Company Number: FR-JNJFOC-20090400449

PATIENT
  Age: 24 Year
  Sex: Female
  Weight: 49 kg

DRUGS (1)
  1. REMICADE [Suspect]
     Indication: CROHN'S DISEASE
     Route: 042

REACTIONS (17)
  - ANAEMIA [None]
  - CROHN'S DISEASE [None]
  - CYTOLYTIC HEPATITIS [None]
  - DEVICE RELATED INFECTION [None]
  - DRUG EXPOSURE DURING PREGNANCY [None]
  - GESTATIONAL TROPHOBLASTIC DETACHMENT [None]
  - HYPERTHERMIA [None]
  - NITRITE URINE PRESENT [None]
  - PREGNANCY [None]
  - PREMATURE LABOUR [None]
  - PREMATURE RUPTURE OF MEMBRANES [None]
  - PROTEINURIA [None]
  - SEROCONVERSION TEST POSITIVE [None]
  - STAPHYLOCOCCAL INFECTION [None]
  - THROMBOCYTOSIS [None]
  - UTERINE CONTRACTIONS ABNORMAL [None]
  - VULVOVAGINAL PAIN [None]
